FAERS Safety Report 19900763 (Version 1)
Quarter: 2021Q3

REPORT INFORMATION
  Report Type: Spontaneous
  Country: US (occurrence: US)
  Receive Date: 20210930
  Receipt Date: 20210930
  Transmission Date: 20211014
  Serious: No
  Sender: FDA-Public Use
  Company Number: None

PATIENT
  Sex: Male

DRUGS (22)
  1. SILDENAFIL. [Suspect]
     Active Substance: SILDENAFIL
  2. FOLIC ACID. [Concomitant]
     Active Substance: FOLIC ACID
  3. PANTOPRAZOLE SODIUM. [Concomitant]
     Active Substance: PANTOPRAZOLE SODIUM
  4. FARXIGA [Concomitant]
     Active Substance: DAPAGLIFLOZIN PROPANEDIOL
  5. METOPROLOL SUCCINATE ER [Concomitant]
     Active Substance: METOPROLOL SUCCINATE
  6. LISINOPRIL. [Concomitant]
     Active Substance: LISINOPRIL
  7. LETAIRIS [Suspect]
     Active Substance: AMBRISENTAN
  8. TYLENOL EXTRA STRENGTH [Concomitant]
     Active Substance: ACETAMINOPHEN
  9. OMEPRAZOLE ODT [Concomitant]
  10. BASAGLAR KWIKPEN [Concomitant]
     Active Substance: INSULIN GLARGINE
  11. HYDROXYZINE HYDROCHLORIDE. [Concomitant]
     Active Substance: HYDROXYZINE HYDROCHLORIDE
  12. SUCRALFATE. [Concomitant]
     Active Substance: SUCRALFATE
  13. BUSPIRONE HYDROCHLORIDE. [Concomitant]
     Active Substance: BUSPIRONE HYDROCHLORIDE
  14. LORAZEPAM. [Concomitant]
     Active Substance: LORAZEPAM
  15. FUROSEMIDE. [Concomitant]
     Active Substance: FUROSEMIDE
  16. CITALOPRAM HYDROBROMIDE. [Concomitant]
     Active Substance: CITALOPRAM HYDROBROMIDE
  17. LIPITOR [Concomitant]
     Active Substance: ATORVASTATIN CALCIUM
  18. VENTOLIN HFA [Concomitant]
     Active Substance: ALBUTEROL SULFATE
  19. VITAMIN D [Concomitant]
     Active Substance: VITAMIN D NOS
  20. SPIRONOLACTONE. [Concomitant]
     Active Substance: SPIRONOLACTONE
  21. SERTRALINE HCL [Concomitant]
     Active Substance: SERTRALINE HYDROCHLORIDE
  22. PEPCID [Concomitant]
     Active Substance: FAMOTIDINE

REACTIONS (8)
  - Dizziness [None]
  - Hypotension [None]
  - Fatigue [None]
  - Palpitations [None]
  - Vertigo [None]
  - Dyspnoea [None]
  - Headache [None]
  - Hypertension [None]
